FAERS Safety Report 8978833 (Version 1)
Quarter: 2012Q4

REPORT INFORMATION
  Report Type: 
  Country: GB (occurrence: GB)
  Receive Date: 20121220
  Receipt Date: 20121220
  Transmission Date: 20130627
  Serious: Yes (Disabling)
  Sender: FDA-Public Use
  Company Number: GB-WATSON-2012-22280

PATIENT
  Age: 19 Year
  Sex: Male

DRUGS (1)
  1. CITALOPRAM HYDROBROMIDE (UNKNOWN) [Suspect]
     Indication: ANTIDEPRESSANT THERAPY
     Dosage: different brands used
     Route: 048
     Dates: start: 201206

REACTIONS (3)
  - Libido decreased [Not Recovered/Not Resolved]
  - Anorgasmia [Not Recovered/Not Resolved]
  - Erectile dysfunction [Unknown]
